FAERS Safety Report 6453919-4 (Version None)
Quarter: 2009Q4

REPORT INFORMATION
  Report Type: 
  Country: None (occurrence: None)
  Receive Date: 20091124
  Receipt Date: 20091113
  Transmission Date: 20100525
  Serious: Yes (Other)
  Sender: FDA-Public Use
  Company Number: US-ABBOTT-09P-163-0581444-00

PATIENT
  Sex: Male
  Weight: 81.72 kg

DRUGS (6)
  1. KALETRA [Suspect]
     Indication: HIV INFECTION
     Route: 048
     Dates: start: 20050101
  2. COMBIVIR [Concomitant]
     Indication: HIV INFECTION
     Route: 048
  3. VIREAD [Concomitant]
     Indication: HIV INFECTION
     Route: 048
  4. FLUOXETINE [Concomitant]
     Indication: DEPRESSION
     Route: 048
  5. GEMFIBROZIL [Concomitant]
     Indication: ANTICOAGULANT THERAPY
     Route: 048
  6. OMEPRAZOLE [Concomitant]
     Indication: DYSPEPSIA
     Route: 048

REACTIONS (3)
  - ABDOMINAL DISTENSION [None]
  - DIARRHOEA [None]
  - PROSTATE CANCER [None]
